FAERS Safety Report 19258661 (Version 2)
Quarter: 2021Q2

REPORT INFORMATION
  Report Type: Spontaneous
  Country: JP (occurrence: JP)
  Receive Date: 20210514
  Receipt Date: 20210524
  Transmission Date: 20210717
  Serious: Yes (Other)
  Sender: FDA-Public Use
  Company Number: JP-MYLANLABS-2021M1028007

PATIENT
  Age: 52 Year
  Sex: Female

DRUGS (16)
  1. NIVOLUMAB [Suspect]
     Active Substance: NIVOLUMAB
     Indication: NASAL SINUS CANCER
  2. AMRUBICIN [Suspect]
     Active Substance: AMRUBICIN
     Indication: METASTASES TO BONE
  3. CARBOPLATIN. [Suspect]
     Active Substance: CARBOPLATIN
     Indication: METASTASES TO BONE
  4. CARBOPLATIN. [Suspect]
     Active Substance: CARBOPLATIN
     Indication: METASTASES TO LIVER
  5. IRINOTECAN [Suspect]
     Active Substance: IRINOTECAN
     Indication: METASTASES TO LIVER
  6. NIVOLUMAB [Suspect]
     Active Substance: NIVOLUMAB
     Indication: METASTASES TO BONE
  7. CARBOPLATIN. [Suspect]
     Active Substance: CARBOPLATIN
     Indication: NEUROENDOCRINE CARCINOMA METASTATIC
     Route: 065
  8. IRINOTECAN [Suspect]
     Active Substance: IRINOTECAN
     Indication: NASAL SINUS CANCER
  9. IRINOTECAN [Suspect]
     Active Substance: IRINOTECAN
     Indication: METASTASES TO BONE
  10. CARBOPLATIN. [Suspect]
     Active Substance: CARBOPLATIN
     Indication: NASAL SINUS CANCER
  11. AMRUBICIN [Suspect]
     Active Substance: AMRUBICIN
     Indication: NASAL SINUS CANCER
  12. AMRUBICIN [Suspect]
     Active Substance: AMRUBICIN
     Indication: METASTASES TO LIVER
  13. NIVOLUMAB [Suspect]
     Active Substance: NIVOLUMAB
     Indication: NEUROENDOCRINE CARCINOMA METASTATIC
     Route: 065
  14. IRINOTECAN [Suspect]
     Active Substance: IRINOTECAN
     Indication: NEUROENDOCRINE CARCINOMA METASTATIC
     Route: 065
  15. AMRUBICIN [Suspect]
     Active Substance: AMRUBICIN
     Indication: NEUROENDOCRINE CARCINOMA METASTATIC
     Route: 065
  16. NIVOLUMAB [Suspect]
     Active Substance: NIVOLUMAB
     Indication: METASTASES TO LIVER

REACTIONS (1)
  - Drug ineffective [Unknown]
